FAERS Safety Report 9194421 (Version 1)
Quarter: 2013Q1

REPORT INFORMATION
  Report Type: Spontaneous
  Country: US (occurrence: US)
  Receive Date: 20130327
  Receipt Date: 20130327
  Transmission Date: 20140127
  Serious: No
  Sender: FDA-Public Use
  Company Number: US-ALLERGAN-1203715US

PATIENT
  Age: 54 Year
  Sex: Female

DRUGS (3)
  1. LATISSE 0.03% [Suspect]
     Indication: HYPOTRICHOSIS
     Dosage: 2 GTT, UNK
     Route: 061
     Dates: start: 20120307, end: 20120314
  2. RESTASIS? [Concomitant]
     Indication: SJOGREN^S SYNDROME
  3. RESTASIS? [Concomitant]
     Indication: DRY EYE

REACTIONS (6)
  - Inappropriate schedule of drug administration [Unknown]
  - Photophobia [Recovered/Resolved]
  - Hyperaesthesia [Recovered/Resolved]
  - Eye discharge [Recovered/Resolved]
  - Eye pain [Recovered/Resolved]
  - Eye irritation [Recovered/Resolved]
